FAERS Safety Report 8124673-5 (Version None)
Quarter: 2012Q1

REPORT INFORMATION
  Report Type: 
  Country: None (occurrence: None)
  Receive Date: 20120209
  Receipt Date: 20120209
  Transmission Date: 20120608
  Serious: Yes (Life-Threatening, Hospitalization, Disabling)
  Sender: FDA-Public Use
  Company Number: None

PATIENT
  Age: 66 Year
  Sex: Female
  Weight: 65.77 kg

DRUGS (1)
  1. EXCEDRIN TENSION HEADACHE CAPLETS [Suspect]
     Indication: HEADACHE
     Dosage: 2 TABLETS
     Route: 048
     Dates: start: 20080208, end: 20120110

REACTIONS (6)
  - PRODUCT CONTAMINATION [None]
  - MUSCLE DISORDER [None]
  - GASTRIC HAEMORRHAGE [None]
  - INTERNATIONAL NORMALISED RATIO INCREASED [None]
  - POOR QUALITY DRUG ADMINISTERED [None]
  - CEREBROVASCULAR ACCIDENT [None]
